FAERS Safety Report 24213445 (Version 2)
Quarter: 2024Q3

REPORT INFORMATION
  Report Type: Spontaneous
  Country: JP (occurrence: JP)
  Receive Date: 20240815
  Receipt Date: 20240819
  Transmission Date: 20241017
  Serious: Yes (Life-Threatening, Hospitalization)
  Sender: PFIZER
  Company Number: JP-MLMSERVICE-20240808-PI153824-00232-1

PATIENT
  Age: 62 Year
  Sex: Male

DRUGS (11)
  1. METHYLPREDNISOLONE SODIUM SUCCINATE [Suspect]
     Active Substance: METHYLPREDNISOLONE SODIUM SUCCINATE
     Indication: Liver transplant rejection
     Dosage: FROM POD 17 TO 32, TAPERING FROM 665 MG/D TO 20 MG/D
     Route: 042
  2. METHYLPREDNISOLONE SODIUM SUCCINATE [Suspect]
     Active Substance: METHYLPREDNISOLONE SODIUM SUCCINATE
     Dosage: FROM  POD 17 TO 32, TAPERING FROM 665 MG/D TO 20 MG/D
     Route: 042
  3. METHYLPREDNISOLONE SODIUM SUCCINATE [Suspect]
     Active Substance: METHYLPREDNISOLONE SODIUM SUCCINATE
     Dosage: FROM  POD 17 TO 32, TAPERING FROM 665 MG/D TO 20 MG/D
     Route: 042
  4. PREDNISOLONE [Suspect]
     Active Substance: PREDNISOLONE
     Indication: Liver transplant rejection
     Dosage: 20 MG, 1X/DAY
     Route: 048
  5. PREDNISOLONE [Suspect]
     Active Substance: PREDNISOLONE
     Dosage: TAPERED GRADUALLY FROM 20 MG/D
     Route: 048
  6. TACROLIMUS [Suspect]
     Active Substance: TACROLIMUS
     Indication: Immunosuppressant drug therapy
     Dosage: ON POD 32, CHANGED TO ORAL WITH A TARGET TROUGH CONCENTRATION OF 10-12 NG/ML
     Route: 048
  7. TACROLIMUS [Suspect]
     Active Substance: TACROLIMUS
     Dosage: TARGET CONCENTRATION OF 15-18 NG/ML(INFUSION)
     Route: 042
  8. MYCOPHENOLATE MOFETIL [Suspect]
     Active Substance: MYCOPHENOLATE MOFETIL
     Indication: Immunosuppressant drug therapy
     Dosage: ON POD 35, CHANGED TO 1 G/D ORALLY
     Route: 048
  9. MYCOPHENOLATE MOFETIL [Suspect]
     Active Substance: MYCOPHENOLATE MOFETIL
     Dosage: VIA ENTEROSTOMY AT 1 G/D
  10. MICAFUNGIN [Concomitant]
     Active Substance: MICAFUNGIN SODIUM
     Indication: Antifungal treatment
     Dosage: 100 MG, 1X/DAY
     Route: 048
  11. MICAFUNGIN [Concomitant]
     Active Substance: MICAFUNGIN SODIUM
     Dosage: 100 MG, 1X/DAY

REACTIONS (9)
  - Septic shock [Recovering/Resolving]
  - Acidosis [Recovering/Resolving]
  - Urinary tract infection [Recovering/Resolving]
  - Klebsiella infection [Recovering/Resolving]
  - Atrial fibrillation [Recovered/Resolved]
  - Cardio-respiratory arrest [Recovered/Resolved]
  - Spinal compression fracture [Unknown]
  - Osteomyelitis [Recovering/Resolving]
  - Renal impairment [Recovering/Resolving]
